FAERS Safety Report 11896011 (Version 1)
Quarter: 2016Q1

REPORT INFORMATION
  Report Type: Other
  Country: JP (occurrence: JP)
  Receive Date: 20160107
  Receipt Date: 20160107
  Transmission Date: 20160526
  Serious: Yes (Other)
  Sender: FDA-Public Use
  Company Number: JP-WARNER CHILCOTT, LLC-1046254

PATIENT
  Age: 33 Year
  Sex: Female

DRUGS (4)
  1. PREDONINE [Concomitant]
     Active Substance: PREDNISOLONE\PREDNISOLONE ACETATE\PREDNISOLONE SODIUM SUCCINATE
  2. BAKTAR [Concomitant]
     Active Substance: SULFAMETHOXAZOLE\TRIMETHOPRIM
  3. FLUCONAZOLE. [Concomitant]
     Active Substance: FLUCONAZOLE
  4. ACTONEL [Suspect]
     Active Substance: RISEDRONATE SODIUM
     Route: 048
     Dates: end: 201203

REACTIONS (11)
  - Pulpitis dental [None]
  - Bone neoplasm [None]
  - Soft tissue infection [None]
  - Osteitis [None]
  - Loose tooth [None]
  - Osteomyelitis [None]
  - Gingival erythema [None]
  - Tooth loss [None]
  - Tooth disorder [None]
  - Alveolar bone resorption [None]
  - Gingival swelling [None]

NARRATIVE: CASE EVENT DATE: 201112
